FAERS Safety Report 18594034 (Version 1)
Quarter: 2020Q4

REPORT INFORMATION
  Report Type: Spontaneous
  Country: FR (occurrence: FR)
  Receive Date: 20201209
  Receipt Date: 20201209
  Transmission Date: 20210114
  Serious: Yes (Hospitalization)
  Sender: FDA-Public Use
  Company Number: FR-ROCHE-2729405

PATIENT
  Age: 83 Year
  Sex: Female

DRUGS (4)
  1. ROACTEMRA [Suspect]
     Active Substance: TOCILIZUMAB
     Indication: RHEUMATOID ARTHRITIS
  2. BISOPROLOL HEMIFUMARATE [Concomitant]
     Active Substance: BISOPROLOL FUMARATE
     Dates: start: 20201203
  3. ROACTEMRA [Suspect]
     Active Substance: TOCILIZUMAB
     Indication: GIANT CELL ARTERITIS
     Route: 058
     Dates: start: 20190904
  4. ELIQUIS [Concomitant]
     Active Substance: APIXABAN
     Dates: start: 20201202

REACTIONS (8)
  - Mouth ulceration [Unknown]
  - Weight increased [Unknown]
  - Dyspnoea [Unknown]
  - Constipation [Unknown]
  - Tachycardia [Unknown]
  - Pain in extremity [Recovered/Resolved]
  - Anxiety [Unknown]
  - Blood pressure fluctuation [Unknown]

NARRATIVE: CASE EVENT DATE: 20201203
